FAERS Safety Report 9700996 (Version 1)
Quarter: 2013Q4

REPORT INFORMATION
  Report Type: Spontaneous
  Country: US (occurrence: None)
  Receive Date: 20131120
  Receipt Date: 20131120
  Transmission Date: 20140711
  Serious: Yes (Life-Threatening, Hospitalization)
  Sender: FDA-Public Use
  Company Number: None

PATIENT
  Age: 61 Year
  Sex: Female
  Weight: 73.03 kg

DRUGS (1)
  1. LEVOFLOXACIN [Suspect]
     Indication: DIVERTICULITIS
     Route: 048
     Dates: start: 20131112, end: 20131112

REACTIONS (6)
  - Swelling face [None]
  - Urticaria [None]
  - Loss of consciousness [None]
  - Ear swelling [None]
  - Feeling hot [None]
  - Eye swelling [None]
